FAERS Safety Report 4512253-X (Version None)
Quarter: 2004Q4

REPORT INFORMATION
  Report Type: 
  Country: None (occurrence: None)
  Receive Date: 20041119
  Receipt Date: 20041111
  Transmission Date: 20050328
  Serious: No
  Sender: FDA-Public Use
  Company Number: 04H-163-0280620-00

PATIENT
  Sex: 0

DRUGS (3)
  1. HEPARIN SODIUM [Suspect]
     Indication: ANTICOAGULANT THERAPY
     Dosage: PERCUTANEOUS; BEGINNING OF PCI- COMPLETITION OF PCI
  2. BIVALIRUDIN [Suspect]
     Indication: THROMBOSIS PROPHYLAXIS
     Dosage: SEE IMAGE
     Route: 042
  3. CONTRAST MEDIAC [Concomitant]

REACTIONS (3)
  - ANGIOPATHY [None]
  - HAEMORRHAGE [None]
  - IATROGENIC INJURY [None]
